FAERS Safety Report 12370775 (Version 2)
Quarter: 2016Q2

REPORT INFORMATION
  Report Type: Report from Study
  Country: US (occurrence: US)
  Receive Date: 20160516
  Receipt Date: 20160603
  Transmission Date: 20160815
  Serious: Yes (Other)
  Sender: FDA-Public Use
  Company Number: PHEH2016US012029

PATIENT
  Age: 32 Year
  Sex: Female
  Weight: 86 kg

DRUGS (1)
  1. GILENYA [Suspect]
     Active Substance: FINGOLIMOD HYDROCHLORIDE
     Indication: RELAPSING-REMITTING MULTIPLE SCLEROSIS
     Dosage: 0.5 MG, QD
     Route: 048
     Dates: start: 20130220

REACTIONS (8)
  - Multiple sclerosis relapse [Unknown]
  - JC virus test positive [Unknown]
  - CD4 lymphocytes decreased [Unknown]
  - Flatulence [Recovered/Resolved]
  - Lymphocyte count decreased [Unknown]
  - Meralgia paraesthetica [Recovered/Resolved]
  - Abdominal distension [Recovered/Resolved]
  - Urinary incontinence [Recovered/Resolved]

NARRATIVE: CASE EVENT DATE: 201406
